FAERS Safety Report 7679549-4 (Version None)
Quarter: 2011Q3

REPORT INFORMATION
  Report Type: 
  Country: None (occurrence: None)
  Receive Date: 20110812
  Receipt Date: 20110805
  Transmission Date: 20111222
  Serious: Yes (Life-Threatening)
  Sender: FDA-Public Use
  Company Number: FR-BRISTOL-MYERS SQUIBB COMPANY-15965148

PATIENT
  Age: 40 Year
  Sex: Male

DRUGS (7)
  1. RANITIDINE [Concomitant]
     Indication: DYSPHAGIA
  2. FLUOROURACIL [Suspect]
     Indication: OESOPHAGEAL CARCINOMA
     Route: 042
     Dates: start: 20110117, end: 20110214
  3. CETUXIMAB [Suspect]
     Indication: OESOPHAGEAL CARCINOMA
     Route: 042
     Dates: start: 20110111, end: 20110214
  4. DAFALGAN CODEINE [Concomitant]
     Indication: ANALGESIC THERAPY
     Dosage: TABS
  5. CISPLATIN [Suspect]
     Indication: OESOPHAGEAL CARCINOMA
     Route: 042
     Dates: start: 20110117, end: 20110214
  6. PREDNISOLONE [Concomitant]
     Dosage: FOLLOWING RADIO CHEMOTHERAPY
     Dates: start: 20110101
  7. DOXYCYCLINE [Concomitant]
     Indication: RASH
     Dates: start: 20110101

REACTIONS (1)
  - ANASTOMOTIC FISTULA [None]
